FAERS Safety Report 5230149-5 (Version None)
Quarter: 2007Q1

REPORT INFORMATION
  Report Type: 
  Country: None (occurrence: None)
  Receive Date: 20070206
  Receipt Date: 20060828
  Transmission Date: 20070707
  Serious: No
  Sender: FDA-Public Use
  Company Number: US-GLAXOSMITHKLINE-A0618248A

PATIENT
  Age: 63 Year
  Sex: Male

DRUGS (4)
  1. PAXIL CR [Suspect]
     Indication: ANXIETY
     Dosage: 12.5MG PER DAY
     Route: 048
     Dates: start: 20060824
  2. HYDROCHLOROTHIAZIDE [Concomitant]
  3. CAPTOPRIL [Concomitant]
  4. LOPRESSOR [Concomitant]

REACTIONS (1)
  - ROAD TRAFFIC ACCIDENT [None]
